FAERS Safety Report 9689823 (Version 1)
Quarter: 2013Q4

REPORT INFORMATION
  Report Type: Spontaneous
  Country: US (occurrence: US)
  Receive Date: 20131115
  Receipt Date: 20131115
  Transmission Date: 20140711
  Serious: Yes (Other)
  Sender: FDA-Public Use
  Company Number: US-AMGEN-USASP2013080161

PATIENT
  Age: 71 Year
  Sex: Female
  Weight: 71.66 kg

DRUGS (1)
  1. ENBREL [Suspect]
     Indication: RHEUMATOID ARTHRITIS
     Dosage: UNK, QWK
     Route: 058
     Dates: start: 2003, end: 20131109

REACTIONS (3)
  - Urethral haemorrhage [Unknown]
  - Urinary tract infection [Unknown]
  - Hair colour changes [Unknown]
